FAERS Safety Report 20501228 (Version 1)
Quarter: 2022Q1

REPORT INFORMATION
  Report Type: Spontaneous
  Country: US (occurrence: None)
  Receive Date: 20220218
  Receipt Date: 20220218
  Transmission Date: 20220423
  Serious: No
  Sender: FDA-Public Use
  Company Number: None

PATIENT
  Sex: Female
  Weight: 47.25 kg

DRUGS (10)
  1. METHYLPHENIDATE [Suspect]
     Active Substance: METHYLPHENIDATE
     Indication: Attention deficit hyperactivity disorder
     Dosage: 30 TABLET(S)  DAILY ORAL?
     Route: 048
  2. ALLEGRA [Concomitant]
     Active Substance: FEXOFENADINE HYDROCHLORIDE
  3. LAMOTRIGINE [Concomitant]
     Active Substance: LAMOTRIGINE
  4. MALLINCKRODT [Concomitant]
  5. METHYLPHENIDATE [Concomitant]
     Active Substance: METHYLPHENIDATE
  6. NORETHINDRONE [Concomitant]
     Active Substance: NORETHINDRONE
  7. VITAMIN D [Concomitant]
     Active Substance: VITAMIN D NOS
  8. FISH OIL [Concomitant]
     Active Substance: FISH OIL
  9. ZINC [Concomitant]
     Active Substance: ZINC
  10. MAGNESIUM [Concomitant]
     Active Substance: MAGNESIUM

REACTIONS (6)
  - Drug ineffective [None]
  - Therapeutic product effect decreased [None]
  - Headache [None]
  - Anger [None]
  - Crying [None]
  - Product substitution issue [None]
